FAERS Safety Report 17413474 (Version 1)
Quarter: 2020Q1

REPORT INFORMATION
  Report Type: Spontaneous
  Country: TW (occurrence: TW)
  Receive Date: 20200213
  Receipt Date: 20200213
  Transmission Date: 20200409
  Serious: Yes (Life-Threatening, Hospitalization)
  Sender: FDA-Public Use
  Company Number: TW-ASTRAZENECA-2019SE55153

PATIENT
  Age: 63 Year
  Sex: Female

DRUGS (2)
  1. GLIMEPIRIDE/METFORMIN [Concomitant]
     Active Substance: GLIMEPIRIDE\METFORMIN
     Indication: TYPE 2 DIABETES MELLITUS
     Dosage: 4/1000 MG/DAY, TWICE
     Route: 048
  2. DAPAGLIFLOZIN. [Suspect]
     Active Substance: DAPAGLIFLOZIN
     Indication: TYPE 2 DIABETES MELLITUS
     Route: 048

REACTIONS (1)
  - Euglycaemic diabetic ketoacidosis [Recovered/Resolved]
